FAERS Safety Report 24981432 (Version 1)
Quarter: 2025Q1

REPORT INFORMATION
  Report Type: Spontaneous
  Country: JP (occurrence: JP)
  Receive Date: 20250218
  Receipt Date: 20250218
  Transmission Date: 20250408
  Serious: Yes (Death)
  Sender: IDORSIA PHARMACEUTICALS
  Company Number: JP-IDORSIA-009318-2025-JP

PATIENT

DRUGS (1)
  1. QUVIVIQ [Suspect]
     Active Substance: DARIDOREXANT
     Indication: Insomnia
     Dosage: 25 MG, QD
     Route: 065

REACTIONS (1)
  - Marasmus [Fatal]
